FAERS Safety Report 4473890-4 (Version None)
Quarter: 2004Q4

REPORT INFORMATION
  Report Type: 
  Country: None (occurrence: None)
  Receive Date: 20041008
  Receipt Date: 20040920
  Transmission Date: 20050328
  Serious: Yes (Other)
  Sender: FDA-Public Use
  Company Number: US_0408104831

PATIENT
  Age: 26 Year
  Sex: Male

DRUGS (9)
  1. GEMZAR [Suspect]
     Indication: MESOTHELIOMA
     Dosage: 2300 MG
     Dates: start: 20021010, end: 20031201
  2. CISPLATIN [Concomitant]
  3. ATIVAN [Concomitant]
  4. DECADRON [Concomitant]
  5. ANZEMET (DOLASETRON MESILATE) [Concomitant]
  6. PHENERGAN [Concomitant]
  7. ARANESP [Concomitant]
  8. LOVENOX [Concomitant]
  9. COUMADIN [Concomitant]

REACTIONS (6)
  - ASCITES [None]
  - JUGULAR VEIN THROMBOSIS [None]
  - MALIGNANT NEOPLASM PROGRESSION [None]
  - MESOTHELIOMA MALIGNANT [None]
  - OEDEMA PERIPHERAL [None]
  - THERAPY NON-RESPONDER [None]
